FAERS Safety Report 25670898 (Version 3)
Quarter: 2025Q4

REPORT INFORMATION
  Report Type: Report from Study
  Country: CA (occurrence: CA)
  Receive Date: 20250812
  Receipt Date: 20251007
  Transmission Date: 20260118
  Serious: Yes (Other)
  Sender: HLS THERAPEUTICS
  Company Number: CA-HLS-202501721

PATIENT
  Sex: Male

DRUGS (7)
  1. CLOZARIL [Suspect]
     Active Substance: CLOZAPINE
     Indication: Product used for unknown indication
     Dosage: 2 TAB OF 100MG ONCE /DAY AT BEDTIME WITH 2 TAB OF 25 MG TOTAL 250 MG
     Route: 048
     Dates: start: 20111116
  2. TRIFLUOPERAZINE [Concomitant]
     Active Substance: TRIFLUOPERAZINE HYDROCHLORIDE
     Indication: Product used for unknown indication
     Dosage: 1 5MG TABLET TWICE/DAY MORNING AND BEDTIME WITH 10 MG TOTAL MORNING 15 MG AND TOTAL BEDTIME 25MG?2 1
     Route: 065
     Dates: start: 20241101
  3. PAROXETINE [Concomitant]
     Active Substance: PAROXETINE
     Indication: Product used for unknown indication
     Dosage: 2 1/2 TAB 50 MG ONCE/DAY AT BEDTIME
     Route: 065
     Dates: start: 20241101
  4. PROPRANOLOL [Concomitant]
     Active Substance: PROPRANOLOL HYDROCHLORIDE
     Indication: Hypertension
     Dosage: ONE 10MG TAB TWICE A DAY MORNING AND EVENING IF TREMORS NOT RESOLVED WITH 10 MG.?1TAB TWICE A DAY MO
     Route: 065
     Dates: start: 20240419
  5. PROPRANOLOL [Concomitant]
     Active Substance: PROPRANOLOL HYDROCHLORIDE
     Indication: Tremor
     Dosage: ONE 10MG TAB TWICE A DAY MORNING AND EVENING IF TREMORS NOT RESOLVED WITH 10 MG.?1TAB TWICE A DAY MO
     Route: 065
     Dates: start: 20240419
  6. Gel Glace 2% gel [Concomitant]
     Indication: Product used for unknown indication
     Dosage: LOCAL APPLICATION CERVICAL LEVEL- THRICE A DAY AS NEEDED
     Route: 065
     Dates: start: 20241112
  7. ATORVASTATIN [Concomitant]
     Active Substance: ATORVASTATIN
     Indication: Product used for unknown indication
     Dosage: ONE 10MG TAB ONCE/DAY AT BEDTIME
     Route: 065
     Dates: start: 20240227

REACTIONS (3)
  - Hallucination, auditory [Unknown]
  - Tremor [Unknown]
  - Orthostatic hypotension [Unknown]
